FAERS Safety Report 4674150-9 (Version None)
Quarter: 2005Q2

REPORT INFORMATION
  Report Type: 
  Country: None (occurrence: None)
  Receive Date: 20050524
  Receipt Date: 20050524
  Transmission Date: 20051028
  Serious: Yes (Hospitalization)
  Sender: FDA-Public Use
  Company Number: None

PATIENT
  Age: 51 Year
  Sex: Female
  Weight: 102.5129 kg

DRUGS (12)
  1. FLEET ACCU PREP [Suspect]
     Indication: GASTROINTESTINAL DISORDER
     Dosage: 45 ML; X1; PO
     Route: 048
     Dates: start: 20050102
  2. FLEET ACCU PREP [Suspect]
     Indication: GASTROINTESTINAL DISORDER
     Dosage: 45 ML; X1; PO
     Route: 048
     Dates: start: 20050103
  3. SYNTHROID [Concomitant]
  4. MAXZIDE [Concomitant]
  5. PRAVACHOL [Concomitant]
  6. MULTI-VITAMIN [Concomitant]
  7. GLUCOSAMINE AND MSM CHONDROITIN SULFATE [Concomitant]
  8. CLONAZEPAM [Concomitant]
  9. SULF/TMP SOLUTION [Concomitant]
  10. PATANOL [Concomitant]
  11. ERYTHROMYCIN [Concomitant]
  12. EFFEXOR [Concomitant]

REACTIONS (5)
  - BACK PAIN [None]
  - BUTTOCK PAIN [None]
  - INSOMNIA [None]
  - NECK PAIN [None]
  - SHOULDER PAIN [None]
